FAERS Safety Report 10493545 (Version 3)
Quarter: 2015Q1

REPORT INFORMATION
  Report Type: Spontaneous
  Country: US (occurrence: US)
  Receive Date: 20141002
  Receipt Date: 20150212
  Transmission Date: 20150720
  Serious: No
  Sender: FDA-Public Use
  Company Number: US-GLAXOSMITHKLINE-A1085492A

PATIENT

DRUGS (6)
  1. ALBUTEROL. [Concomitant]
     Active Substance: ALBUTEROL
  2. PRILOSEC [Concomitant]
     Active Substance: OMEPRAZOLE MAGNESIUM
  3. MVI [Concomitant]
     Active Substance: VITAMINS
  4. BABY ASPIRIN [Concomitant]
     Active Substance: ASPIRIN
  5. ADVAIR DISKUS [Suspect]
     Active Substance: FLUTICASONE PROPIONATE\SALMETEROL XINAFOATE
     Indication: ASTHMA
     Dosage: 1 PUFF(S), BID
     Route: 055
     Dates: start: 2004
  6. FISH OIL [Concomitant]
     Active Substance: FISH OIL

REACTIONS (5)
  - Drug ineffective [Unknown]
  - Product quality issue [Unknown]
  - Dyspnoea [Unknown]
  - Inhalation therapy [Unknown]
  - Chest discomfort [Unknown]

NARRATIVE: CASE EVENT DATE: 20140815
